FAERS Safety Report 24828150 (Version 2)
Quarter: 2025Q1

REPORT INFORMATION
  Report Type: Spontaneous
  Country: US (occurrence: US)
  Receive Date: 20250109
  Receipt Date: 20250320
  Transmission Date: 20250409
  Serious: No
  Sender: ITALFARMACO SPA
  Company Number: US-ITALFARMACO SPA-2168725

PATIENT
  Age: 14 Year
  Sex: Male
  Weight: 49.9 kg

DRUGS (1)
  1. DUVYZAT [Suspect]
     Active Substance: GIVINOSTAT
     Indication: Duchenne muscular dystrophy
     Dates: start: 20241007

REACTIONS (2)
  - Haematoma [Not Recovered/Not Resolved]
  - Platelet count decreased [Not Recovered/Not Resolved]
